FAERS Safety Report 8986433 (Version 2)
Quarter: 2013Q1

REPORT INFORMATION
  Report Type: Spontaneous
  Country: BE (occurrence: BE)
  Receive Date: 20121227
  Receipt Date: 20130201
  Transmission Date: 20140127
  Serious: Yes (Other)
  Sender: FDA-Public Use
  Company Number: BE-AMGEN-BELSP2012082459

PATIENT
  Age: 57 Year
  Sex: Male
  Weight: 66.57 kg

DRUGS (12)
  1. XGEVA [Suspect]
     Indication: METASTASES TO BONE
     Dosage: 120 MG, Q4WK
     Route: 058
     Dates: start: 20120727, end: 20121212
  2. XGEVA [Suspect]
     Indication: PROSTATE CANCER
  3. FIRMAGON                           /01764801/ [Concomitant]
     Indication: PROSTATE CANCER
     Dosage: UNK UNK, Q4WK
     Route: 058
  4. TRAMADOL [Concomitant]
     Indication: PAIN
     Dosage: 50 MG, QID
     Route: 048
     Dates: end: 20121225
  5. DICLOFENAC [Concomitant]
     Indication: PAIN
     Dosage: 75 MG, QID
     Route: 048
  6. CRESTOR [Concomitant]
     Dosage: 10 MG, QD
     Route: 048
  7. EZETROL [Concomitant]
     Dosage: 10 MG, QD
     Route: 048
  8. NOBITEN                            /01339101/ [Concomitant]
     Dosage: 5 MG, QD
     Route: 048
  9. OMEPRAZOLE [Concomitant]
     Dosage: 20 MG, QD
     Route: 048
  10. CASODEX [Concomitant]
  11. D VITAL [Concomitant]
  12. ASAFLOW [Concomitant]
     Dosage: 80 MG, QD

REACTIONS (14)
  - Chest pain [Recovered/Resolved]
  - Hyperhidrosis [Recovered/Resolved]
  - Dyspnoea [Recovered/Resolved]
  - Spinal pain [Recovered/Resolved]
  - Back pain [Unknown]
  - Blood pressure increased [Unknown]
  - Weight increased [Unknown]
  - C-reactive protein increased [Unknown]
  - Blood alkaline phosphatase increased [Unknown]
  - Intervertebral disc protrusion [Unknown]
  - Vascular calcification [Unknown]
  - Cystitis noninfective [Unknown]
  - Anaemia [Unknown]
  - Blood lactate dehydrogenase increased [Unknown]
